FAERS Safety Report 6026121-8 (Version None)
Quarter: 2009Q1

REPORT INFORMATION
  Report Type: 
  Country: None (occurrence: None)
  Receive Date: 20090102
  Receipt Date: 20081221
  Transmission Date: 20090719
  Serious: Yes (Other)
  Sender: FDA-Public Use
  Company Number: CH-ROCHE-574896

PATIENT
  Sex: Female
  Weight: 57 kg

DRUGS (18)
  1. MIRCERA [Suspect]
     Route: 042
     Dates: start: 20080508, end: 20080508
  2. MIRCERA [Suspect]
     Route: 042
     Dates: start: 20080605, end: 20080605
  3. RECORMON [Concomitant]
     Dosage: DOSAGE REPORTE AS 30.000 E BEFORE 6 MAY 2008
     Route: 042
  4. RECORMON [Concomitant]
     Dosage: DOSAGE REPORTED AS 20.000 E
     Route: 042
  5. RECORMON [Concomitant]
     Dosage: DOSAGE REPORTED AS 17.000 E (10.000+ 5.000+2.000) PER WEEK
     Route: 042
     Dates: end: 20080506
  6. MYFORTIC [Concomitant]
     Route: 048
     Dates: end: 20080708
  7. MYFORTIC [Concomitant]
     Route: 048
     Dates: start: 20080725
  8. SANDIMMUNE [Concomitant]
     Route: 048
  9. ZURCAL [Concomitant]
     Route: 048
  10. CALCITRIOL [Concomitant]
     Dosage: DRUG REPORTED AS CALCITRIOL SALMON. DOSE: 3 DOSE FORMS PER WEEK
     Route: 048
     Dates: start: 20071003
  11. CALCIUM ACETATE [Concomitant]
     Dosage: DRUG REPORTED AS ^CALCIUM AC PHOSPHATBI^.
     Route: 048
  12. SIMVASTATIN [Concomitant]
     Route: 048
     Dates: end: 20080708
  13. SIMVASTATIN [Concomitant]
     Route: 048
     Dates: start: 20080725
  14. 1 CONCOMITANT DRUG [Concomitant]
     Dosage: DRUG REPORTED AS ^METO ZEROK^.
     Route: 048
  15. ENALAPRIL MALEATE [Concomitant]
     Route: 048
  16. RETIN-A [Concomitant]
  17. RETIN-A [Concomitant]
  18. VENOFER [Concomitant]
     Route: 042

REACTIONS (2)
  - AGRANULOCYTOSIS [None]
  - LEUKOPENIA [None]
